FAERS Safety Report 8017172-2 (Version None)
Quarter: 2012Q1

REPORT INFORMATION
  Report Type: 
  Country: None (occurrence: None)
  Receive Date: 20120102
  Receipt Date: 20111226
  Transmission Date: 20120608
  Serious: Yes (Death)
  Sender: FDA-Public Use
  Company Number: JP-ROCHE-734600

PATIENT
  Age: 73 Year
  Sex: Male

DRUGS (9)
  1. LEVOLEUCOVORIN CALCIUM [Concomitant]
     Dosage: DOSAGE IS UNCERTAIN.
     Route: 041
  2. FLUOROURACIL [Concomitant]
     Dosage: DOSAGE IS UNCERTAIN.
     Route: 040
  3. FLUOROURACIL [Concomitant]
     Dosage: DOSAGE IS UNCERTAIN.
     Route: 040
  4. FLUOROURACIL [Concomitant]
     Route: 040
  5. IRINOTECAN HYDROCHLORIDE [Concomitant]
     Dosage: IRINOTECAN HYDROCHLORIDE
     Route: 041
  6. LEVOLEUCOVORIN CALCIUM [Concomitant]
     Dosage: DOSAGE IS UNCERTAIN.
     Route: 041
  7. AVASTIN [Suspect]
     Indication: COLON CANCER
     Dosage: DOSAGE IS UNCERTAIN.
     Route: 041
     Dates: start: 20080801, end: 20090401
  8. OXALIPLATIN [Concomitant]
     Dosage: DOSAGE IS UNCERTAIN
     Route: 041
  9. FLUOROURACIL [Concomitant]
     Dosage: DOSAGE IS UNCERTAIN
     Route: 040

REACTIONS (4)
  - GASTROINTESTINAL PERFORATION [None]
  - NEUROPATHY PERIPHERAL [None]
  - DISSEMINATED INTRAVASCULAR COAGULATION [None]
  - INFECTIOUS PERITONITIS [None]
